FAERS Safety Report 6821320-7 (Version None)
Quarter: 2010Q3

REPORT INFORMATION
  Report Type: 
  Country: None (occurrence: None)
  Receive Date: 20100707
  Receipt Date: 20080709
  Transmission Date: 20110219
  Serious: No
  Sender: FDA-Public Use
  Company Number: US-PFIZER INC-2008057116

PATIENT
  Age: 42 Year
  Sex: Female

DRUGS (3)
  1. ZOLOFT [Suspect]
     Indication: DEPRESSION
  2. THERAFLU [Suspect]
     Indication: NASOPHARYNGITIS
     Route: 048
     Dates: start: 20080608, end: 20080608
  3. WELLBUTRIN [Suspect]
     Indication: DEPRESSION

REACTIONS (2)
  - DIZZINESS [None]
  - FEELING ABNORMAL [None]
